FAERS Safety Report 6963785-6 (Version None)
Quarter: 2010Q3

REPORT INFORMATION
  Report Type: 
  Country: None (occurrence: None)
  Receive Date: 20100902
  Receipt Date: 20100827
  Transmission Date: 20110219
  Serious: Yes (Hospitalization, Disabling, Other)
  Sender: FDA-Public Use
  Company Number: US-BAXTER-2010BH020761

PATIENT
  Sex: Male

DRUGS (5)
  1. BREVIBLOC [Suspect]
     Indication: HYPERTENSION
     Route: 042
     Dates: start: 20100616, end: 20100617
  2. BREVIBLOC [Suspect]
     Route: 042
     Dates: start: 20100616, end: 20100617
  3. GEODON [Concomitant]
     Indication: AGITATION
     Route: 030
     Dates: start: 20100617, end: 20100622
  4. VALIUM [Concomitant]
     Indication: AGITATION
     Route: 048
     Dates: start: 20100617, end: 20100622
  5. VALIUM [Concomitant]
     Route: 030
     Dates: start: 20100617, end: 20100622

REACTIONS (2)
  - BLINDNESS [None]
  - BLINDNESS TRANSIENT [None]
